FAERS Safety Report 21234571 (Version 1)
Quarter: 2022Q3

REPORT INFORMATION
  Report Type: Report from Study
  Country: US (occurrence: US)
  Receive Date: 20220820
  Receipt Date: 20220820
  Transmission Date: 20221027
  Serious: Yes (Other)
  Sender: FDA-Public Use
  Company Number: US-ABBVIE-22K-163-4510271-00

PATIENT
  Sex: Female

DRUGS (1)
  1. SKYRIZI [Suspect]
     Active Substance: RISANKIZUMAB-RZAA
     Indication: Psoriasis
     Dosage: INJECT 150MG AT WEEK 0, THEN WEEK 4 THEN EVERY 12 WEEKS THEREAFTER
     Route: 058
     Dates: start: 20220405

REACTIONS (1)
  - Muscle injury [Unknown]

NARRATIVE: CASE EVENT DATE: 20220101
